FAERS Safety Report 18428691 (Version 1)
Quarter: 2020Q4

REPORT INFORMATION
  Report Type: Spontaneous
  Country: US (occurrence: US)
  Receive Date: 20201026
  Receipt Date: 20201026
  Transmission Date: 20210114
  Serious: Yes (Other)
  Sender: FDA-Public Use
  Company Number: NVSC2020US284870

PATIENT
  Age: 73 Year
  Weight: 56 kg

DRUGS (1)
  1. HYDROXYCHLOROQUINE [Suspect]
     Active Substance: HYDROXYCHLOROQUINE
     Indication: PRODUCT USED FOR UNKNOWN INDICATION
     Dosage: 7.14 MG/KG, QD (DAILY DOSAGE 400 MG, TOTAL CUMULATIVE DOSAGE 803 G)
     Route: 065
     Dates: start: 201604

REACTIONS (2)
  - Retinal toxicity [Unknown]
  - Overdose [Unknown]
